FAERS Safety Report 10757766 (Version 2)
Quarter: 2015Q1

REPORT INFORMATION
  Report Type: Report from Study
  Country: US (occurrence: US)
  Receive Date: 20150203
  Receipt Date: 20150209
  Transmission Date: 20150721
  Serious: Yes (Death)
  Sender: FDA-Public Use
  Company Number: US-ROCHE-1531437

PATIENT

DRUGS (1)
  1. ALTEPLASE [Suspect]
     Active Substance: ALTEPLASE
     Indication: PERIPHERAL ISCHAEMIA
     Route: 065

REACTIONS (2)
  - Death [Fatal]
  - Off label use [Unknown]
